FAERS Safety Report 7150658-1 (Version None)
Quarter: 2010Q4

REPORT INFORMATION
  Report Type: 
  Country: None (occurrence: None)
  Receive Date: 20101210
  Receipt Date: 20101202
  Transmission Date: 20110411
  Serious: Yes (Hospitalization, Other)
  Sender: FDA-Public Use
  Company Number: DE-JNJFOC-20100905157

PATIENT
  Age: 30 Year
  Sex: Female
  Weight: 86.9 kg

DRUGS (5)
  1. TOPAMAX [Suspect]
     Indication: EPILEPSY
     Dosage: 1-0-0
     Route: 048
  2. TOPAMAX [Suspect]
     Dosage: 1-2-0
     Route: 048
  3. PETNIDAN [Concomitant]
     Route: 065
  4. PARIET [Concomitant]
     Route: 065
  5. NOVALGIN [Concomitant]
     Route: 048

REACTIONS (3)
  - GENERAL PHYSICAL HEALTH DETERIORATION [None]
  - PANCREATITIS [None]
  - WEIGHT DECREASED [None]
